FAERS Safety Report 4951403-8 (Version None)
Quarter: 2006Q1

REPORT INFORMATION
  Report Type: 
  Country: None (occurrence: None)
  Receive Date: 20060317
  Receipt Date: 20060308
  Transmission Date: 20060701
  Serious: Yes (Hospitalization, Other)
  Sender: FDA-Public Use
  Company Number: HQWYE221409MAR06

PATIENT
  Age: 84 Year
  Sex: Female

DRUGS (11)
  1. CORDARONE [Suspect]
     Indication: ATRIAL FIBRILLATION
     Dosage: 800 MG 1X PER 1 DAY; 400 MG 1X PER 1 DAY; 200 MG 1X PER 1 DAY
     Route: 048
     Dates: start: 20051228, end: 20051229
  2. CORDARONE [Suspect]
     Indication: ATRIAL FIBRILLATION
     Dosage: 800 MG 1X PER 1 DAY; 400 MG 1X PER 1 DAY; 200 MG 1X PER 1 DAY
     Route: 048
     Dates: start: 20051230, end: 20060105
  3. CORDARONE [Suspect]
     Indication: ATRIAL FIBRILLATION
     Dosage: 800 MG 1X PER 1 DAY; 400 MG 1X PER 1 DAY; 200 MG 1X PER 1 DAY
     Route: 048
     Dates: start: 20060106, end: 20060112
  4. POTASSIUM CHLORIDE [Concomitant]
  5. LASIX [Concomitant]
  6. FLAGYL [Concomitant]
  7. CEFTRIAXONE [Concomitant]
  8. PREVISCAN (FLUINDIONE, ) [Suspect]
     Dosage: 20 MG 1X PER 1 DAY; 10 MG 1X PER 1 DAY; 10 MG 1X PER 1 DAY
     Route: 048
     Dates: start: 20060109, end: 20060111
  9. PREVISCAN (FLUINDIONE, ) [Suspect]
     Dosage: 20 MG 1X PER 1 DAY; 10 MG 1X PER 1 DAY; 10 MG 1X PER 1 DAY
     Route: 048
     Dates: start: 20060112, end: 20060113
  10. PREVISCAN (FLUINDIONE, ) [Suspect]
     Dosage: 20 MG 1X PER 1 DAY; 10 MG 1X PER 1 DAY; 10 MG 1X PER 1 DAY
     Route: 048
     Dates: start: 20060114, end: 20060114
  11. FLUCONAZOLE [Suspect]
     Dosage: 100 MG 1X PER 1 DAY
     Route: 048
     Dates: start: 20060105, end: 20060112

REACTIONS (2)
  - DRUG INTERACTION [None]
  - INTERNATIONAL NORMALISED RATIO INCREASED [None]
